FAERS Safety Report 19448744 (Version 2)
Quarter: 2021Q2

REPORT INFORMATION
  Report Type: Spontaneous
  Country: BR (occurrence: BR)
  Receive Date: 20210622
  Receipt Date: 20210630
  Transmission Date: 20210717
  Serious: Yes (Other)
  Sender: FDA-Public Use
  Company Number: BR-ASTELLAS-2021US022450

PATIENT
  Age: 74 Year
  Sex: Female
  Weight: 39 kg

DRUGS (4)
  1. MYRBETRIQ [Suspect]
     Active Substance: MIRABEGRON
     Indication: URINARY INCONTINENCE
     Dosage: UNK UNK, ONCE DAILY
     Route: 048
     Dates: start: 2010
  2. MYRBETRIQ [Suspect]
     Active Substance: MIRABEGRON
     Indication: HYPERTONIC BLADDER
  3. SERTRALINE [Concomitant]
     Active Substance: SERTRALINE HYDROCHLORIDE
     Indication: DEPRESSION
     Dosage: UNK UNK, ONCE DAILY (FOR 4 YEARS)
     Route: 065
  4. BETINE [Concomitant]
     Indication: LABYRINTHITIS
     Dosage: UNK UNK, TWICE DAILY (MORNING AND NIGHT) (FOR 4 YEARS)
     Route: 065

REACTIONS (3)
  - Abdominal distension [Recovered/Resolved]
  - Cystitis [Recovered/Resolved]
  - Diarrhoea [Recovering/Resolving]

NARRATIVE: CASE EVENT DATE: 20210123
